FAERS Safety Report 5796667-6 (Version None)
Quarter: 2008Q2

REPORT INFORMATION
  Report Type: 
  Country: None (occurrence: None)
  Receive Date: 20080627
  Receipt Date: 20080616
  Transmission Date: 20081010
  Serious: Yes (Hospitalization)
  Sender: FDA-Public Use
  Company Number: 235098J08USA

PATIENT
  Age: 57 Year
  Sex: Female
  Weight: 59.9 kg

DRUGS (1)
  1. REBIF [Suspect]
     Indication: MULTIPLE SCLEROSIS
     Dosage: 22 MCG, 3 IN 1 WEEKS, SUBCUTANEOUS
     Route: 058
     Dates: start: 20080429

REACTIONS (3)
  - FACIAL SPASM [None]
  - TIC [None]
  - TRIGEMINAL NEURALGIA [None]
